FAERS Safety Report 7251740-0 (Version None)
Quarter: 2011Q1

REPORT INFORMATION
  Report Type: 
  Country: None (occurrence: None)
  Receive Date: 20110128
  Receipt Date: 20110120
  Transmission Date: 20110831
  Serious: Yes (Hospitalization)
  Sender: FDA-Public Use
  Company Number: FR-MERCK-1101FRA00097

PATIENT
  Age: 68 Year
  Sex: Male

DRUGS (3)
  1. VORICONAZOLE [Suspect]
     Route: 048
     Dates: start: 20100210, end: 20100331
  2. POSACONAZOLE [Suspect]
     Route: 048
     Dates: start: 20100408, end: 20100422
  3. CANCIDAS [Suspect]
     Route: 042
     Dates: start: 20100401, end: 20100407

REACTIONS (2)
  - NEUTROPENIA [None]
  - VISUAL IMPAIRMENT [None]
